FAERS Safety Report 5851996-2 (Version None)
Quarter: 2008Q3

REPORT INFORMATION
  Report Type: 
  Country: None (occurrence: None)
  Receive Date: 20080820
  Receipt Date: 20080808
  Transmission Date: 20090109
  Serious: Yes (Other)
  Sender: FDA-Public Use
  Company Number: JP-PFIZER INC-2008066672

PATIENT
  Age: 77 Year
  Sex: Male

DRUGS (11)
  1. ALDACTONE [Suspect]
     Dosage: DAILY DOSE:25MG
     Route: 048
  2. ADETPHOS [Concomitant]
     Route: 048
  3. CYANOCOBALAMIN [Concomitant]
  4. AMLODIPINE BESYLATE [Concomitant]
     Route: 048
  5. NU LOTAN [Concomitant]
     Route: 048
  6. BUFFERIN [Concomitant]
     Route: 048
  7. ARTIST [Concomitant]
     Route: 048
  8. HARNAL [Concomitant]
     Route: 048
  9. NITROGLYCERIN [Concomitant]
     Route: 062
  10. XALATAN [Concomitant]
     Route: 047
  11. AZOPT [Concomitant]
     Route: 047

REACTIONS (2)
  - EMPYEMA [None]
  - HYPOACUSIS [None]
